FAERS Safety Report 8218000-2 (Version None)
Quarter: 2012Q1

REPORT INFORMATION
  Report Type: 
  Country: None (occurrence: None)
  Receive Date: 20120319
  Receipt Date: 20120309
  Transmission Date: 20120608
  Serious: Yes (Hospitalization)
  Sender: FDA-Public Use
  Company Number: JP-PFIZER INC-2012047150

PATIENT
  Age: 89 Year
  Sex: Female

DRUGS (4)
  1. ZOSYN [Suspect]
     Indication: PNEUMONIA
     Dosage: 4.5 G, 2X/DAY
     Route: 042
     Dates: start: 20120207, end: 20120211
  2. SENNOSIDE A [Concomitant]
     Indication: CONSTIPATION
     Dosage: 24 MG, 1X/DAY
     Route: 048
  3. RISPERDAL [Concomitant]
     Indication: DEMENTIA
     Dosage: 1 MG, 1X/DAY
     Route: 048
     Dates: end: 20120211
  4. LOSARTAN POTASSIUM [Concomitant]
     Indication: HYPERTENSION
     Dosage: 25 MG, 1X/DAY
     Route: 048

REACTIONS (1)
  - ALTERED STATE OF CONSCIOUSNESS [None]
